FAERS Safety Report 20348673 (Version 2)
Quarter: 2022Q1

REPORT INFORMATION
  Report Type: Report from Study
  Country: US (occurrence: US)
  Receive Date: 20220119
  Receipt Date: 20220310
  Transmission Date: 20220423
  Serious: Yes (Other)
  Sender: FDA-Public Use
  Company Number: US-ABBVIE-22K-163-4236953-00

PATIENT
  Age: 83 Year
  Sex: Male

DRUGS (1)
  1. IMBRUVICA [Suspect]
     Active Substance: IBRUTINIB
     Indication: Chronic lymphocytic leukaemia
     Route: 048
     Dates: start: 201804

REACTIONS (6)
  - Calculus bladder [Unknown]
  - Bladder obstruction [Unknown]
  - Urethral obstruction [Unknown]
  - Blood immunoglobulin G abnormal [Unknown]
  - Calculus prostatic [Unknown]
  - Skin laceration [Unknown]

NARRATIVE: CASE EVENT DATE: 20211201
